FAERS Safety Report 13542978 (Version 1)
Quarter: 2017Q2

REPORT INFORMATION
  Report Type: Spontaneous
  Country: IT (occurrence: IT)
  Receive Date: 20170513
  Receipt Date: 20170513
  Transmission Date: 20170830
  Serious: Yes (Hospitalization)
  Sender: FDA-Public Use
  Company Number: IT-ACCORD-051260

PATIENT
  Age: 70 Year
  Sex: Female

DRUGS (4)
  1. ZOLPIDEM [Concomitant]
     Active Substance: ZOLPIDEM\ZOLPIDEM TARTRATE
     Indication: PRODUCT USED FOR UNKNOWN INDICATION
  2. TOPIRAMATE. [Suspect]
     Active Substance: TOPIRAMATE
     Indication: PARTIAL SEIZURES
     Dosage: DOSE OF 50 MG X 2 UNTIL MAR-24, THEN 100 MG X 2 UNTIL MAR-28, THEN 150 MG X 2 UNTIL MAR-30.
     Route: 048
     Dates: start: 20170321, end: 20170330
  3. LEVETIRACETAM. [Concomitant]
     Active Substance: LEVETIRACETAM
     Indication: PRODUCT USED FOR UNKNOWN INDICATION
  4. DEPAKIN [Interacting]
     Active Substance: VALPROATE SODIUM
     Indication: PARTIAL SEIZURES
     Dosage: STRENGTH: 400 MG/4 ML?WAS ADMINISTERED AT THE DOSE OF 400 + 1600 MG
     Route: 042
     Dates: start: 20170320

REACTIONS (4)
  - Hyperammonaemia [Unknown]
  - Liver disorder [Recovered/Resolved]
  - Coma acidotic [Recovered/Resolved]
  - Drug interaction [Unknown]

NARRATIVE: CASE EVENT DATE: 20170326
